FAERS Safety Report 16178615 (Version 1)
Quarter: 2019Q2

REPORT INFORMATION
  Report Type: Spontaneous
  Country: DK (occurrence: DK)
  Receive Date: 20190410
  Receipt Date: 20190410
  Transmission Date: 20190711
  Serious: Yes (Hospitalization)
  Sender: FDA-Public Use
  Company Number: PHHY2019DK080060

PATIENT
  Age: 13 Year
  Sex: Female
  Weight: 44.6 kg

DRUGS (1)
  1. FLUOXETIN 1A FARMA [Suspect]
     Active Substance: FLUOXETINE HYDROCHLORIDE
     Indication: DEPRESSION
     Dosage: 20 MG, QD
     Route: 048
     Dates: start: 201903

REACTIONS (4)
  - Suicidal behaviour [Recovered/Resolved]
  - Haematoma [Not Recovered/Not Resolved]
  - Yawning [Not Recovered/Not Resolved]
  - Tremor [Not Recovered/Not Resolved]

NARRATIVE: CASE EVENT DATE: 20190201
